FAERS Safety Report 18986000 (Version 1)
Quarter: 2021Q1

REPORT INFORMATION
  Report Type: Spontaneous
  Country: US (occurrence: US)
  Receive Date: 20210309
  Receipt Date: 20210309
  Transmission Date: 20210420
  Serious: Yes (Other)
  Sender: FDA-Public Use
  Company Number: US-HIKMA PHARMACEUTICALS USA INC.-US-H14001-21-00921

PATIENT
  Age: 28 Year
  Sex: Male

DRUGS (8)
  1. NIACIN. [Concomitant]
     Active Substance: NIACIN
     Indication: PRODUCT USED FOR UNKNOWN INDICATION
     Route: 048
  2. VITAMIN D3 [Concomitant]
     Active Substance: CHOLECALCIFEROL
     Indication: PRODUCT USED FOR UNKNOWN INDICATION
     Route: 048
  3. BOSENTAN. [Suspect]
     Active Substance: BOSENTAN
     Indication: PRODUCT USED FOR UNKNOWN INDICATION
     Route: 048
  4. FLAXSEED [Concomitant]
     Active Substance: FLAX SEED
     Indication: PRODUCT USED FOR UNKNOWN INDICATION
     Route: 048
  5. PLAVIX [Concomitant]
     Active Substance: CLOPIDOGREL BISULFATE
     Indication: PRODUCT USED FOR UNKNOWN INDICATION
     Route: 048
  6. SERTRALINE [Concomitant]
     Active Substance: SERTRALINE HYDROCHLORIDE
     Indication: PRODUCT USED FOR UNKNOWN INDICATION
     Route: 048
  7. ASPIRIN. [Concomitant]
     Active Substance: ASPIRIN
     Indication: PRODUCT USED FOR UNKNOWN INDICATION
     Route: 048
  8. FUROSEMIDE. [Concomitant]
     Active Substance: FUROSEMIDE
     Indication: PRODUCT USED FOR UNKNOWN INDICATION
     Route: 048

REACTIONS (21)
  - Cardiomyopathy [Unknown]
  - Fibrosis [Unknown]
  - Dyspnoea exertional [Unknown]
  - Tricuspid valve incompetence [Unknown]
  - Cardiac failure congestive [Unknown]
  - Carbon dioxide increased [Unknown]
  - Aortic valve incompetence [Unknown]
  - Mitral valve incompetence [Unknown]
  - Pulmonary hypertension [Unknown]
  - Essential hypertension [Unknown]
  - Stenosis [Unknown]
  - Pain in extremity [Unknown]
  - Bundle branch block right [Unknown]
  - Blood urea increased [Unknown]
  - Cardiac murmur [Unknown]
  - Subclavian artery occlusion [Unknown]
  - Heart disease congenital [Unknown]
  - Supraventricular tachycardia [Unknown]
  - Aneurysm [Unknown]
  - Left atrial enlargement [Unknown]
  - Right ventricular hypertrophy [Unknown]

NARRATIVE: CASE EVENT DATE: 20160219
